FAERS Safety Report 10048457 (Version 1)
Quarter: 2014Q1

REPORT INFORMATION
  Report Type: Spontaneous
  Country: CL (occurrence: CL)
  Receive Date: 20140331
  Receipt Date: 20140331
  Transmission Date: 20141002
  Serious: Yes (Other)
  Sender: FDA-Public Use
  Company Number: CL-PFIZER INC-2014087093

PATIENT
  Age: 73 Year
  Sex: Female

DRUGS (5)
  1. XALATAN [Suspect]
     Indication: GLAUCOMA
     Dosage: 1 DROP, 1X/DAY
     Route: 047
     Dates: start: 2008
  2. METHOTREXATE SODIUM [Concomitant]
  3. AZULFIDINE [Concomitant]
  4. PREDNISONE [Concomitant]
  5. FOLIC ACID [Concomitant]

REACTIONS (3)
  - Arthropathy [Unknown]
  - Hip fracture [Unknown]
  - Fall [Unknown]
